FAERS Safety Report 5657227-0 (Version None)
Quarter: 2008Q1

REPORT INFORMATION
  Report Type: 
  Country: None (occurrence: None)
  Receive Date: 20080310
  Receipt Date: 20080225
  Transmission Date: 20080703
  Serious: Yes (Other)
  Sender: FDA-Public Use
  Company Number: DE-ASTRAZENECA-2008SE00635

PATIENT
  Age: 66 Year
  Sex: Female

DRUGS (2)
  1. BELOC ZOK COMP [Suspect]
     Indication: HYPERTENSION
     Dosage: 1 TABLET/DAY
     Route: 048
  2. SEDARISTON [Concomitant]

REACTIONS (1)
  - UTERINE DISORDER [None]
